FAERS Safety Report 7470652-0 (Version None)
Quarter: 2011Q2

REPORT INFORMATION
  Report Type: 
  Country: None (occurrence: None)
  Receive Date: 20110506
  Receipt Date: 20110506
  Transmission Date: 20111010
  Serious: Yes (Other)
  Sender: FDA-Public Use
  Company Number: None

PATIENT
  Age: 36 Year
  Sex: Female
  Weight: 56.6996 kg

DRUGS (1)
  1. LORAZEPAM [Suspect]
     Indication: PREMEDICATION
     Dosage: 1 MG 1  ONLY 1 PILL PRE SURGERY
     Dates: start: 20110504, end: 20110504

REACTIONS (6)
  - SCREAMING [None]
  - ANGER [None]
  - FEELING ABNORMAL [None]
  - HOSTILITY [None]
  - DISORIENTATION [None]
  - AGGRESSION [None]
